FAERS Safety Report 9074715 (Version 1)
Quarter: 2013Q1

REPORT INFORMATION
  Report Type: Report from Study
  Country: US (occurrence: US)
  Receive Date: 20130129
  Receipt Date: 20130129
  Transmission Date: 20140127
  Serious: No
  Sender: FDA-Public Use
  Company Number: US-ABBOTT-12P-163-0934526-00

PATIENT
  Age: 38 Year
  Sex: Female

DRUGS (4)
  1. HUMIRA 40 MG/0.8 ML PEN [Suspect]
     Indication: CROHN^S DISEASE
     Dates: start: 20120216
  2. IMURAN [Concomitant]
     Indication: CROHN^S DISEASE
     Dosage: 150MG DAILY
  3. ARMOUR THYROID [Concomitant]
     Indication: HYPOTHYROIDISM
     Dosage: 75MCG DAILY
  4. COUMADIN [Concomitant]
     Indication: THROMBOSIS
     Dosage: 5MG DAILY

REACTIONS (3)
  - Injection site reaction [Recovered/Resolved]
  - Injection site erythema [Recovered/Resolved]
  - Injection site urticaria [Recovered/Resolved]
